FAERS Safety Report 9738996 (Version 1)
Quarter: 2013Q4

REPORT INFORMATION
  Report Type: Report from Study
  Country: US (occurrence: US)
  Receive Date: 20131209
  Receipt Date: 20131209
  Transmission Date: 20140711
  Serious: Yes (Hospitalization, Other)
  Sender: FDA-Public Use
  Company Number: PHEH2013US025184

PATIENT
  Age: 33 Year
  Sex: Male

DRUGS (16)
  1. BASILIXIMAB [Suspect]
     Indication: RENAL TRANSPLANT
     Dosage: 20 MG,DAY 0 AND DAY4
     Route: 042
     Dates: start: 20130725
  2. BASILIXIMAB [Suspect]
     Dosage: 20 MG, DAY 0 AND DAY 4
     Route: 042
     Dates: start: 20130729
  3. MYCOPHENOLATE MOFETIL [Suspect]
     Indication: RENAL TRANSPLANT
     Dosage: 1000 MG, BID
     Route: 048
     Dates: start: 20130725
  4. SULFAMETHOXAZOL W/TRIMETOPRIM [Concomitant]
     Dosage: UNK UKN, UNK
     Dates: start: 20130725
  5. NYSTATIN [Concomitant]
     Dosage: UNK UKN, UNK
  6. DOCUSATE SODIUM [Concomitant]
     Dosage: UNK UKN, UNK
     Dates: start: 20130725
  7. RANITIDINE [Concomitant]
     Dosage: UNK UKN, UNK
     Dates: start: 20130725
  8. SIMVASTATIN [Concomitant]
     Dosage: UNK UKN, UNK
     Dates: start: 20130725
  9. HEPARIN [Concomitant]
     Dosage: UNK UKN, UNK
  10. ACYCLOVIR [Concomitant]
     Dosage: UNK UKN, UNK
     Dates: start: 20130726
  11. INSULIN GLARGINE [Concomitant]
     Dosage: UNK UKN, UNK
     Dates: start: 20130729
  12. HYDROCODONE/ACETAMINOPHEN          /00607101/ [Concomitant]
     Dosage: UNK UKN, UNK
     Dates: start: 20130725
  13. CALCIUM CARBONATE [Concomitant]
     Dosage: UNK UKN, UNK
     Dates: start: 20130728
  14. PREDNISONE [Concomitant]
     Dosage: UNK UKN, UNK
     Dates: start: 20130730
  15. SEVELAMER CARBONATE [Concomitant]
     Dosage: UNK UKN, UNK
     Dates: start: 20130730
  16. POLYETHYLENE GLYCOL [Concomitant]
     Dosage: UNK UKN, UNK
     Dates: start: 20130730

REACTIONS (5)
  - Kidney transplant rejection [Recovered/Resolved]
  - Blood creatinine increased [Unknown]
  - Intra-abdominal haematoma [Recovered/Resolved]
  - Abdominal pain [Unknown]
  - Hyperkalaemia [Recovered/Resolved]
